FAERS Safety Report 9172178 (Version 1)
Quarter: 2013Q1

REPORT INFORMATION
  Report Type: Spontaneous
  Country: IT (occurrence: IT)
  Receive Date: 20130319
  Receipt Date: 20130319
  Transmission Date: 20140127
  Serious: Yes (Hospitalization)
  Sender: FDA-Public Use
  Company Number: IT-TEVA-391896ISR

PATIENT
  Age: 89 Year
  Sex: Male

DRUGS (10)
  1. LEVOFLOXACIN [Suspect]
     Indication: CHRONIC OBSTRUCTIVE PULMONARY DISEASE
     Dosage: 1 GRAM DAILY;
     Route: 048
     Dates: start: 20130211, end: 20130220
  2. FLUIMUCIL [Suspect]
     Indication: CHRONIC OBSTRUCTIVE PULMONARY DISEASE
     Dosage: 1 DOSAGE FORMS DAILY;
     Route: 048
     Dates: start: 20130215, end: 20130220
  3. COUMADIN [Suspect]
     Indication: ATRIAL FIBRILLATION
     Dosage: 1 DOSAGE FORMS DAILY;
     Route: 048
     Dates: start: 20080101, end: 20130220
  4. PANTECTA [Concomitant]
     Dosage: 40MG, GASTRORESISTANT TABLETS
  5. LASIX [Concomitant]
  6. SPIRIVA [Concomitant]
  7. PRADIF [Concomitant]
  8. ZYLORIC [Concomitant]
  9. HUMULIN [Concomitant]
  10. DILTIAZEM [Concomitant]

REACTIONS (1)
  - Abdominal wall haematoma [Recovering/Resolving]
